FAERS Safety Report 13816066 (Version 1)
Quarter: 2017Q3

REPORT INFORMATION
  Report Type: Spontaneous
  Country: US (occurrence: US)
  Receive Date: 20170731
  Receipt Date: 20170731
  Transmission Date: 20171127
  Serious: No
  Sender: FDA-Public Use
  Company Number: US-JNJFOC-20170713227

PATIENT
  Age: 24 Year
  Sex: Male

DRUGS (4)
  1. INVEGA [Suspect]
     Active Substance: PALIPERIDONE
     Indication: SCHIZOPHRENIA
     Route: 048
     Dates: start: 201303, end: 201303
  2. RISPERIDONE. [Suspect]
     Active Substance: RISPERIDONE
     Indication: PSYCHOTIC DISORDER
     Dosage: DOSE: 1 MG- 2MG
     Route: 048
     Dates: start: 201201, end: 201202
  3. RISPERDAL [Suspect]
     Active Substance: RISPERIDONE
     Indication: PSYCHOTIC DISORDER
     Dosage: DOSE: 1 MG - 2MG
     Route: 048
     Dates: start: 201103, end: 201111
  4. RISPERDAL [Suspect]
     Active Substance: RISPERIDONE
     Indication: PSYCHOTIC DISORDER
     Route: 048
     Dates: start: 201103, end: 201104

REACTIONS (7)
  - Galactorrhoea [Unknown]
  - Gynaecomastia [Unknown]
  - Somnolence [Unknown]
  - Sedation [Unknown]
  - Overweight [Unknown]
  - Dystonia [Unknown]
  - Insomnia [Unknown]

NARRATIVE: CASE EVENT DATE: 201202
